FAERS Safety Report 4950541-3 (Version None)
Quarter: 2006Q1

REPORT INFORMATION
  Report Type: 
  Country: None (occurrence: None)
  Receive Date: 20060322
  Receipt Date: 20060315
  Transmission Date: 20060701
  Serious: Yes (Other)
  Sender: FDA-Public Use
  Company Number: US-BRISTOL-MYERS SQUIBB COMPANY-13315973

PATIENT
  Age: 67 Year
  Sex: Male
  Weight: 70 kg

DRUGS (3)
  1. CETUXIMAB [Suspect]
     Indication: SQUAMOUS CELL CARCINOMA
     Dosage: THERAPY INITIATED 17-JAN-2006. START DATE OF MOST RECENT COURSE 28-FEB-2006 (COURSE 7).
     Route: 042
     Dates: start: 20060228, end: 20060228
  2. CISPLATIN [Suspect]
     Indication: SQUAMOUS CELL CARCINOMA
     Dosage: THERAPY INITIATED 17-JAN-2006. START DATE OF MOST RECENT COURSE 28-FEB-2006 (COURSE 7).
     Route: 042
     Dates: start: 20060228, end: 20060228
  3. RADIATION THERAPY [Suspect]
     Indication: SQUAMOUS CELL CARCINOMA
     Dosage: TOTAL DOSE 6600 CGY,NUMBER OF FRACTIONS 30 , ELAPSED DAYS 40.
     Dates: start: 20060303, end: 20060303

REACTIONS (2)
  - MUCOSAL INFLAMMATION [None]
  - RADIATION MUCOSITIS [None]
